FAERS Safety Report 15629769 (Version 6)
Quarter: 2020Q2

REPORT INFORMATION
  Report Type: Not Available
  Country: US (occurrence: US)
  Receive Date: 20181117
  Receipt Date: 20200507
  Transmission Date: 20200713
  Serious: No
  Sender: FDA-Public Use
  Company Number: US-NEUROCRINE BIOSCIENCES INC.-2018NBI03191

PATIENT
  Sex: Male

DRUGS (22)
  1. INGREZZA [Suspect]
     Active Substance: VALBENAZINE
     Route: 048
     Dates: start: 20190111
  2. TAMSULOSIN [Concomitant]
     Active Substance: TAMSULOSIN
     Indication: RENAL IMPAIRMENT
  3. ALLOPURINOL. [Concomitant]
     Active Substance: ALLOPURINOL
     Indication: GOUT
  4. ZOCOR [Concomitant]
     Active Substance: SIMVASTATIN
     Indication: BLOOD CHOLESTEROL
  5. XALATAN [Concomitant]
     Active Substance: LATANOPROST
     Indication: GLAUCOMA
  6. MEMANTINE. [Concomitant]
     Active Substance: MEMANTINE
     Indication: CONFUSIONAL STATE
  7. ZOLOFT [Concomitant]
     Active Substance: SERTRALINE HYDROCHLORIDE
     Indication: DEPRESSION
  8. HYDRALAZINE [Concomitant]
     Active Substance: HYDRALAZINE HYDROCHLORIDE
     Indication: HYPERTENSION
  9. NOVOLOG [Concomitant]
     Active Substance: INSULIN ASPART
     Indication: DIABETES MELLITUS
  10. INGREZZA [Suspect]
     Active Substance: VALBENAZINE
     Route: 048
  11. LOSARTAN. [Concomitant]
     Active Substance: LOSARTAN
     Indication: BLOOD PRESSURE MEASUREMENT
  12. AMLODIPINE [Concomitant]
     Active Substance: AMLODIPINE BESYLATE
     Indication: HYPERTENSION
  13. DORZOLAMIDE [Concomitant]
     Active Substance: DORZOLAMIDE
     Indication: DIABETIC GLAUCOMA
     Dosage: USE 1 DROP THREE TIMES A DAY
  14. INGREZZA [Suspect]
     Active Substance: VALBENAZINE
     Indication: TARDIVE DYSKINESIA
     Route: 048
     Dates: start: 20181003, end: 2018
  15. INGREZZA [Suspect]
     Active Substance: VALBENAZINE
     Route: 048
  16. SPIRONOLACTONE. [Concomitant]
     Active Substance: SPIRONOLACTONE
     Indication: FLUID OVERLOAD
  17. BRIMONIDINE [Concomitant]
     Active Substance: BRIMONIDINE TARTRATE
     Indication: GLAUCOMA
  18. INGREZZA [Suspect]
     Active Substance: VALBENAZINE
     Route: 048
  19. ZOLOFT [Concomitant]
     Active Substance: SERTRALINE HYDROCHLORIDE
     Indication: ANXIETY
  20. XALATAN [Concomitant]
     Active Substance: LATANOPROST
     Indication: BLINDNESS
     Dosage: TAKE AT NIGHT
     Route: 061
  21. CHLORTHALIDONE. [Concomitant]
     Active Substance: CHLORTHALIDONE
     Indication: BLOOD PRESSURE MEASUREMENT
     Route: 048
  22. ASPIRIN. [Concomitant]
     Active Substance: ASPIRIN
     Indication: CARDIOVASCULAR DISORDER

REACTIONS (4)
  - Snoring [Unknown]
  - Drug ineffective [Unknown]
  - Somnolence [Not Recovered/Not Resolved]
  - Fatigue [Unknown]

NARRATIVE: CASE EVENT DATE: 2018
